FAERS Safety Report 6328994-8 (Version None)
Quarter: 2009Q3

REPORT INFORMATION
  Report Type: 
  Country: None (occurrence: None)
  Receive Date: 20090826
  Receipt Date: 20090826
  Transmission Date: 20100115
  Serious: Yes (Hospitalization)
  Sender: FDA-Public Use
  Company Number: FR-ABBOTT-09P-056-0591084-00

PATIENT
  Sex: Male

DRUGS (12)
  1. DEPAKENE [Suspect]
     Indication: HEAD INJURY
     Route: 042
     Dates: start: 20090630, end: 20090708
  2. DEPAKENE [Suspect]
     Dates: start: 20090628, end: 20090628
  3. PENTOTHAL [Suspect]
     Indication: HEAD INJURY
     Route: 042
     Dates: start: 20090628, end: 20090628
  4. PENTOTHAL [Suspect]
     Dates: start: 20090628, end: 20090629
  5. PENTOTHAL [Suspect]
     Dates: start: 20090629, end: 20090701
  6. PENTOTHAL [Suspect]
     Dates: start: 20090701, end: 20090701
  7. MIDAZOLAM HCL [Concomitant]
     Indication: DRUG USE FOR UNKNOWN INDICATION
     Route: 042
     Dates: start: 20090626, end: 20090708
  8. SUFENTANYL [Concomitant]
     Indication: ANALGESIA
     Dates: start: 20090626, end: 20090708
  9. PRODILANTIN [Concomitant]
     Indication: DRUG USE FOR UNKNOWN INDICATION
     Route: 042
     Dates: start: 20090626, end: 20090630
  10. ACETAMINOPHEN [Concomitant]
     Indication: DRUG USE FOR UNKNOWN INDICATION
     Route: 042
     Dates: start: 20090626
  11. INEXIUM [Concomitant]
     Indication: DRUG USE FOR UNKNOWN INDICATION
     Dates: start: 20090627, end: 20090710
  12. AUGMENTIN [Concomitant]
     Indication: DRUG USE FOR UNKNOWN INDICATION
     Dates: start: 20090627, end: 20090702

REACTIONS (2)
  - CYTOLYTIC HEPATITIS [None]
  - MIXED LIVER INJURY [None]
